FAERS Safety Report 7258190-1 (Version None)
Quarter: 2011Q1

REPORT INFORMATION
  Report Type: 
  Country: None (occurrence: None)
  Receive Date: 20110129
  Receipt Date: 20100723
  Transmission Date: 20110831
  Serious: Yes (Hospitalization, Other)
  Sender: FDA-Public Use
  Company Number: US-ABBOTT-10P-163-0660046-00

PATIENT
  Sex: Male

DRUGS (3)
  1. HUMIRA [Suspect]
     Indication: PSORIASIS
     Dosage: ONCE, 1ST LOADING DOSE
     Route: 058
     Dates: start: 20080101, end: 20080101
  2. HUMIRA [Suspect]
     Indication: RHEUMATOID ARTHRITIS
     Route: 058
     Dates: start: 20080101, end: 20100301
  3. HUMIRA [Suspect]
     Route: 058
     Dates: start: 20100723

REACTIONS (4)
  - ANKLE FRACTURE [None]
  - IMPAIRED HEALING [None]
  - FALL [None]
  - ARTHRALGIA [None]
